FAERS Safety Report 24247487 (Version 1)
Quarter: 2024Q3

REPORT INFORMATION
  Report Type: Spontaneous
  Country: US (occurrence: US)
  Receive Date: 20240826
  Receipt Date: 20240826
  Transmission Date: 20241017
  Serious: No
  Sender: CIPLA
  Company Number: US-CIPLA LTD.-2023US07350

PATIENT

DRUGS (2)
  1. MELOXICAM [Suspect]
     Active Substance: MELOXICAM
     Indication: Arthritis
     Dosage: UNK
     Route: 065
     Dates: start: 202308
  2. MELOXICAM [Suspect]
     Active Substance: MELOXICAM
     Dosage: UNK
     Route: 065
     Dates: start: 20231115, end: 202311

REACTIONS (2)
  - Abdominal discomfort [Unknown]
  - Product colour issue [Unknown]

NARRATIVE: CASE EVENT DATE: 20230801
